FAERS Safety Report 5191029-7 (Version None)
Quarter: 2006Q4

REPORT INFORMATION
  Report Type: 
  Country: None (occurrence: None)
  Receive Date: 20061218
  Receipt Date: 20061214
  Transmission Date: 20070319
  Serious: Yes (Death, Hospitalization)
  Sender: FDA-Public Use
  Company Number: 2006SP004351

PATIENT
  Age: 63 Year
  Sex: Male

DRUGS (2)
  1. TEMODAL [Suspect]
     Indication: METASTASES TO CENTRAL NERVOUS SYSTEM
     Dosage: PO
     Route: 048
     Dates: start: 20020701, end: 20021015
  2. CISPLATIN [Concomitant]

REACTIONS (5)
  - ALOPECIA [None]
  - ASTHENIA [None]
  - DISEASE PROGRESSION [None]
  - FEBRILE NEUTROPENIA [None]
  - PHLEBITIS [None]
